FAERS Safety Report 26111192 (Version 2)
Quarter: 2025Q4

REPORT INFORMATION
  Report Type: Spontaneous
  Country: EU (occurrence: EU)
  Receive Date: 20251202
  Receipt Date: 20251214
  Transmission Date: 20260117
  Serious: Yes (Death, Other)
  Sender: TAKEDA
  Company Number: EU-INCYTE CORPORATION-2025IN013285

PATIENT
  Sex: Female

DRUGS (1)
  1. ICLUSIG [Suspect]
     Active Substance: PONATINIB HYDROCHLORIDE
     Indication: Chronic myeloid leukaemia
     Dosage: UNK

REACTIONS (3)
  - Hepatic cirrhosis [Fatal]
  - Thrombocytopenia [Unknown]
  - Primary biliary cholangitis [Unknown]
